FAERS Safety Report 22656728 (Version 1)
Quarter: 2023Q2

REPORT INFORMATION
  Report Type: Report from Study
  Country: US (occurrence: None)
  Receive Date: 20230630
  Receipt Date: 20230630
  Transmission Date: 20230721
  Serious: Yes (Death)
  Sender: FDA-Public Use
  Company Number: 2023A148227

PATIENT
  Age: 29988 Day
  Sex: Male
  Weight: 89.8 kg

DRUGS (25)
  1. CALQUENCE [Suspect]
     Active Substance: ACALABRUTINIB
     Indication: Chronic lymphocytic leukaemia
     Route: 048
     Dates: start: 20230424
  2. ALDARA [Concomitant]
     Active Substance: IMIQUIMOD
  3. ALLOPURINOL [Concomitant]
     Active Substance: ALLOPURINOL
  4. B COMPLEX-VITAMIN C [Concomitant]
  5. BENAZEPRIL [Concomitant]
     Active Substance: BENAZEPRIL HYDROCHLORIDE
  6. CARAFATE [Concomitant]
     Active Substance: SUCRALFATE
  7. CEFDINIR [Concomitant]
     Active Substance: CEFDINIR
  8. CEPHALEXIN [Concomitant]
     Active Substance: CEPHALEXIN
  9. COLACE [Concomitant]
     Active Substance: DOCUSATE SODIUM
  10. COENZYME Q10 [Concomitant]
     Active Substance: DIETARY SUPPLEMENT\UBIDECARENONE
  11. ELIQUIS [Concomitant]
     Active Substance: APIXABAN
  12. FLOMAX [Concomitant]
     Active Substance: TAMSULOSIN HYDROCHLORIDE
  13. FUROSEMIDE [Concomitant]
     Active Substance: FUROSEMIDE
  14. HYDROCHLOROTHIAZIDE [Concomitant]
     Active Substance: HYDROCHLOROTHIAZIDE
  15. IMODI M A-D [Concomitant]
  16. METOPROLOL [Concomitant]
     Active Substance: METOPROLOL
  17. MUCINEX [Concomitant]
     Active Substance: GUAIFENESIN
  18. NEBIVOLOL [Concomitant]
     Active Substance: NEBIVOLOL
  19. PRADAXA [Concomitant]
     Active Substance: DABIGATRAN ETEXILATE MESYLATE
  20. PROTONIX [Concomitant]
     Active Substance: PANTOPRAZOLE SODIUM
  21. MAGNESIUM [Concomitant]
     Active Substance: MAGNESIUM
  22. THE ORIGINAL NATURAL HERB COUGH DROPS [Concomitant]
     Active Substance: MENTHOL
  23. ROCEPHIN [Concomitant]
     Active Substance: CEFTRIAXONE SODIUM
  24. SIMVASTATIN [Concomitant]
     Active Substance: SIMVASTATIN
  25. TIMOLOL [Concomitant]
     Active Substance: TIMOLOL

REACTIONS (1)
  - Death [Fatal]

NARRATIVE: CASE EVENT DATE: 20230626
